FAERS Safety Report 16355887 (Version 3)
Quarter: 2019Q3

REPORT INFORMATION
  Report Type: Spontaneous
  Country: DE (occurrence: DE)
  Receive Date: 20190526
  Receipt Date: 20190826
  Transmission Date: 20191004
  Serious: Yes (Hospitalization, Other)
  Sender: FDA-Public Use
  Company Number: DE-JNJFOC-20190527810

PATIENT
  Age: 27 Year
  Sex: Female
  Weight: 77 kg

DRUGS (3)
  1. REBIF [Suspect]
     Active Substance: INTERFERON BETA-1A
     Dosage: 0.33 WEEKS
     Route: 058
     Dates: start: 20190718
  2. IBUPROFEN. [Suspect]
     Active Substance: IBUPROFEN
     Indication: INFLUENZA LIKE ILLNESS
     Dosage: 0.33 WEEKS
     Route: 048
     Dates: start: 20070316, end: 20190505
  3. REBIF [Suspect]
     Active Substance: INTERFERON BETA-1A
     Indication: MULTIPLE SCLEROSIS
     Dosage: TIME INTERVAL: 0.33 WEEKS
     Route: 058
     Dates: start: 20070316, end: 20190506

REACTIONS (12)
  - Herpes zoster [Unknown]
  - Cystatin C increased [Not Recovered/Not Resolved]
  - Pneumonia bacterial [Recovered/Resolved]
  - Influenza like illness [Not Recovered/Not Resolved]
  - Blood creatinine increased [Not Recovered/Not Resolved]
  - Glomerular filtration rate abnormal [Not Recovered/Not Resolved]
  - Malaise [Unknown]
  - Influenza [Recovered/Resolved]
  - Appendicitis [Unknown]
  - Leukopenia [Not Recovered/Not Resolved]
  - Ophthalmic herpes zoster [Recovered/Resolved]
  - Apathy [Unknown]

NARRATIVE: CASE EVENT DATE: 2007
